FAERS Safety Report 14477539 (Version 1)
Quarter: 2018Q1

REPORT INFORMATION
  Report Type: Report from Study
  Country: US (occurrence: US)
  Receive Date: 20180201
  Receipt Date: 20180201
  Transmission Date: 20180509
  Serious: No
  Sender: FDA-Public Use
  Company Number: US-EXELIXIS-CABO-17010978

PATIENT
  Sex: Male

DRUGS (9)
  1. BENADRYL [Concomitant]
     Active Substance: DIPHENHYDRAMINE HYDROCHLORIDE
  2. OXYCODONE HYDROCHLORIDE. [Concomitant]
     Active Substance: OXYCODONE HYDROCHLORIDE
  3. VALIUM [Concomitant]
     Active Substance: DIAZEPAM
  4. LIDOCAINE. [Concomitant]
     Active Substance: LIDOCAINE
  5. CABOMETYX [Suspect]
     Active Substance: CABOZANTINIB S-MALATE
     Indication: RENAL CANCER
     Dosage: 40 MG, QD
     Route: 048
     Dates: start: 20170510
  6. MYLANTA [Concomitant]
     Active Substance: ALUMINUM HYDROXIDE\DIMETHICONE\MAGNESIUM HYDROXIDE
  7. TAMSULOSIN HCL [Concomitant]
     Active Substance: TAMSULOSIN HYDROCHLORIDE
  8. OXYMORPHONE HCL [Concomitant]
     Active Substance: OXYMORPHONE HYDROCHLORIDE
  9. LACTULOSE. [Concomitant]
     Active Substance: LACTULOSE

REACTIONS (4)
  - Oral pain [Unknown]
  - Malaise [Unknown]
  - Hypoaesthesia oral [Unknown]
  - Drug dose omission [Unknown]
